FAERS Safety Report 5179324-9 (Version None)
Quarter: 2006Q4

REPORT INFORMATION
  Report Type: 
  Country: None (occurrence: None)
  Receive Date: 20061219
  Receipt Date: 20061218
  Transmission Date: 20070319
  Serious: Yes (Other)
  Sender: FDA-Public Use
  Company Number: US-GLAXOSMITHKLINE-A0631930A

PATIENT
  Age: 49 Year
  Sex: Female

DRUGS (6)
  1. ADVAIR DISKUS 100/50 [Suspect]
     Indication: ASTHMA
     Dosage: 1PUFF TWICE PER DAY
     Route: 055
  2. SYNTHROID [Concomitant]
  3. PRILOSEC [Concomitant]
  4. ZYRTEC [Concomitant]
  5. ALBUTEROL [Concomitant]
  6. FOLIC ACID [Concomitant]

REACTIONS (4)
  - CANDIDIASIS [None]
  - COUGH [None]
  - DYSPHONIA [None]
  - PNEUMONIA [None]
